FAERS Safety Report 9685203 (Version 1)
Quarter: 2013Q4

REPORT INFORMATION
  Report Type: Spontaneous
  Country: US (occurrence: None)
  Receive Date: 20131112
  Receipt Date: 20131112
  Transmission Date: 20140711
  Serious: Yes (Other)
  Sender: FDA-Public Use
  Company Number: None

PATIENT
  Age: 52 Year
  Sex: Female
  Weight: 73.26 kg

DRUGS (50)
  1. LANTUS [Suspect]
     Indication: DIABETES MELLITUS
     Dosage: 10 UNITS BEDTIME INJECTION (STRENGTH 100 UNITS/M)
     Dates: start: 20131009, end: 20131010
  2. HUMARI [Concomitant]
  3. PROMETHAZINE [Concomitant]
  4. TRAMADOL [Concomitant]
  5. CELEXA [Concomitant]
  6. ZOCAR [Concomitant]
  7. ALBUTEROL [Concomitant]
  8. ALBUTEROL [Concomitant]
  9. ALBUTEROL [Concomitant]
  10. LISINOPRIL [Concomitant]
  11. TRICOR [Concomitant]
  12. ZANAFLEX [Concomitant]
  13. DILTIAZEM [Concomitant]
  14. JANUMET [Concomitant]
  15. TRUNEBIKUBE [Concomitant]
  16. GLUBRIDE [Concomitant]
  17. POTASSIUM [Concomitant]
  18. OMEPRAZOLE [Concomitant]
  19. EPIPEN [Concomitant]
  20. MAGNESIUM [Concomitant]
  21. COLACE [Concomitant]
  22. PREPARATION A [Concomitant]
  23. AMODIUM AD [Concomitant]
  24. ATTARAX [Concomitant]
  25. ONE TOUCH ULTRA [Concomitant]
  26. NEBULIZER [Concomitant]
  27. ALBUTEROL [Concomitant]
  28. HUMARI [Concomitant]
  29. TRICOR [Concomitant]
  30. ZESTRIL [Concomitant]
  31. ZOCOR [Concomitant]
  32. POTASSIUM [Concomitant]
  33. GLUBURIDE [Concomitant]
  34. ZANAFLEX [Concomitant]
  35. CELEXA [Concomitant]
  36. PRILOSEC [Concomitant]
  37. PROMETHAZINE [Concomitant]
  38. TRAMADOL [Concomitant]
  39. GABAPENTIN [Concomitant]
  40. FLUCONAZONALE [Concomitant]
  41. FLUTICANSONE [Concomitant]
  42. KENALONG CREAM [Concomitant]
  43. TRIAM CINOLE [Concomitant]
  44. PRO-AIR HFA [Concomitant]
  45. COLACE AMOXICILLIN [Concomitant]
  46. AMBIEN [Concomitant]
  47. FLEXIRIL [Concomitant]
  48. ATTARAX [Concomitant]
  49. ANUCORT [Concomitant]
  50. B-12 SHOTS [Concomitant]

REACTIONS (7)
  - Pruritus [None]
  - Scratch [None]
  - Epistaxis [None]
  - Dyspnoea [None]
  - Drug hypersensitivity [None]
  - Fatigue [None]
  - Joint swelling [None]
